FAERS Safety Report 8578599-3 (Version None)
Quarter: 2012Q3

REPORT INFORMATION
  Report Type: 
  Country: None (occurrence: None)
  Receive Date: 20120808
  Receipt Date: 20120730
  Transmission Date: 20120928
  Serious: Yes (Hospitalization)
  Sender: FDA-Public Use
  Company Number: JP-VERTEX PHARMACEUTICALS INC.-AE-2012-011366

PATIENT
  Age: 68 Year
  Sex: Male

DRUGS (13)
  1. PEGINTERFERON ALFA-2B [Concomitant]
     Route: 058
     Dates: start: 20120703, end: 20120717
  2. PEGINTERFERON ALFA-2B [Concomitant]
     Route: 058
     Dates: start: 20120718
  3. RABEPRAZOLE SODIUM [Concomitant]
     Route: 048
  4. MARZULENE [Concomitant]
     Route: 048
  5. PEGINTERFERON ALFA-2B [Concomitant]
     Route: 058
     Dates: start: 20120612, end: 20120702
  6. ALLEGRA [Concomitant]
     Route: 048
  7. JANUVIA [Concomitant]
     Route: 048
  8. POLARAMINE [Concomitant]
     Route: 048
     Dates: start: 20120709
  9. TELAVIC [Suspect]
     Indication: HEPATITIS C
     Route: 048
     Dates: start: 20120605, end: 20120612
  10. PEGINTERFERON ALFA-2B [Concomitant]
     Indication: HEPATITIS C
     Route: 058
     Dates: start: 20120605
  11. TELAVIC [Suspect]
     Route: 048
     Dates: start: 20120620
  12. RIBAVIRIN [Concomitant]
     Indication: HEPATITIS C
     Route: 048
     Dates: start: 20120605, end: 20120619
  13. RIBAVIRIN [Concomitant]
     Route: 048
     Dates: start: 20120620

REACTIONS (1)
  - TOXIC SKIN ERUPTION [None]
